FAERS Safety Report 5406219-5 (Version None)
Quarter: 2007Q3

REPORT INFORMATION
  Report Type: 
  Country: None (occurrence: None)
  Receive Date: 20070806
  Receipt Date: 20070725
  Transmission Date: 20080115
  Serious: Yes (Other)
  Sender: FDA-Public Use
  Company Number: JP-MERCK-0707USA04726

PATIENT
  Sex: Female

DRUGS (13)
  1. FAMOTIDINE [Suspect]
     Route: 048
     Dates: end: 20070719
  2. LIPITOR [Suspect]
     Route: 048
     Dates: end: 20070719
  3. SELBEX [Concomitant]
     Route: 065
  4. LOSARTAN POTASSIUM [Concomitant]
     Route: 048
  5. ENALAPRIL MALEATE [Concomitant]
     Route: 048
  6. LASIX [Concomitant]
     Route: 048
  7. PREDONINE [Concomitant]
     Route: 048
  8. CALCIUM LACTATE [Concomitant]
     Route: 048
  9. ALFAROL [Concomitant]
     Route: 048
  10. PENFILL R [Concomitant]
     Route: 058
  11. PENFILL R [Concomitant]
     Route: 058
  12. PENFILL R [Concomitant]
     Route: 058
  13. LANSOPRAZOLE [Concomitant]
     Route: 048

REACTIONS (3)
  - DIABETES MELLITUS [None]
  - DRUG EXPOSURE DURING PREGNANCY [None]
  - PLATELET COUNT DECREASED [None]
